FAERS Safety Report 4316281-9 (Version None)
Quarter: 2004Q1

REPORT INFORMATION
  Report Type: 
  Country: None (occurrence: None)
  Receive Date: 20040310
  Receipt Date: 20040106
  Transmission Date: 20041129
  Serious: Yes (Other)
  Sender: FDA-Public Use
  Company Number: HQWYE172507JAN04

PATIENT
  Sex: Female

DRUGS (1)
  1. PROTONIX [Suspect]
     Indication: DYSPEPSIA
     Dosage: ORAL
     Route: 048
     Dates: end: 20040104

REACTIONS (7)
  - ABNORMAL CHEST SOUND [None]
  - CHEST DISCOMFORT [None]
  - DYSPHONIA [None]
  - MUSCLE SPASMS [None]
  - MUSCLE TIGHTNESS [None]
  - SWELLING [None]
  - UNEVALUABLE EVENT [None]
